FAERS Safety Report 4899137-2 (Version None)
Quarter: 2006Q1

REPORT INFORMATION
  Report Type: 
  Country: None (occurrence: None)
  Receive Date: 20060202
  Receipt Date: 20060113
  Transmission Date: 20060701
  Serious: Yes (Hospitalization)
  Sender: FDA-Public Use
  Company Number: DE-SANOFI-SYNTHELABO-A04200600052

PATIENT
  Sex: Male

DRUGS (9)
  1. PLAVIX [Suspect]
     Indication: STENT PLACEMENT
     Route: 048
     Dates: start: 20050801
  2. ASPIRIN [Concomitant]
     Indication: STENT PLACEMENT
     Dosage: UNK
     Route: 048
     Dates: start: 20050101
  3. AMARYL [Concomitant]
     Indication: DIABETES MELLITUS
     Route: 048
  4. LANTUS [Concomitant]
     Indication: DIABETES MELLITUS
     Dosage: UNK
     Route: 042
  5. CARVEDILOL [Concomitant]
     Indication: CARDIAC FAILURE
     Route: 048
  6. GLUCOPHAGE [Concomitant]
     Indication: DIABETES MELLITUS
     Route: 048
  7. LISINOPRIL [Concomitant]
     Indication: CARDIAC FAILURE
     Route: 048
  8. SIMVAHEXAL [Concomitant]
     Indication: HYPERLIPIDAEMIA
     Route: 048
  9. TORSEMIDE [Concomitant]
     Indication: CARDIAC FAILURE
     Route: 048

REACTIONS (3)
  - C-REACTIVE PROTEIN INCREASED [None]
  - PLEURAL EFFUSION [None]
  - RED BLOOD CELL SEDIMENTATION RATE INCREASED [None]
